FAERS Safety Report 21854055 (Version 1)
Quarter: 2023Q1

REPORT INFORMATION
  Report Type: Spontaneous
  Country: US (occurrence: US)
  Receive Date: 20230112
  Receipt Date: 20230112
  Transmission Date: 20230418
  Serious: No
  Sender: FDA-Public Use
  Company Number: US-BAYER-2023A003026

PATIENT
  Age: 66 Year
  Sex: Female

DRUGS (11)
  1. ALEVE [Suspect]
     Active Substance: NAPROXEN SODIUM
  2. TERIFLUNOMIDE [Concomitant]
     Active Substance: TERIFLUNOMIDE
     Indication: Multiple sclerosis
     Dosage: 14 MG, QD
     Route: 048
  3. LATANOPROST [Concomitant]
     Active Substance: LATANOPROST
  4. HYDROCORTISONE [Concomitant]
     Active Substance: HYDROCORTISONE
  5. ATENOLOL [Concomitant]
     Active Substance: ATENOLOL
  6. HYDROCHLOROTHIAZIDE [Concomitant]
     Active Substance: HYDROCHLOROTHIAZIDE
  7. LOSARTAN [Concomitant]
     Active Substance: LOSARTAN
  8. ATORVASTATIN [Concomitant]
     Active Substance: ATORVASTATIN
  9. TIZANIDINE [Concomitant]
     Active Substance: TIZANIDINE
  10. CHOLECALCIFEROL [Concomitant]
     Active Substance: CHOLECALCIFEROL
  11. DIPHENHYDRAMINE HYDROCHLORIDE [Concomitant]
     Active Substance: DIPHENHYDRAMINE HYDROCHLORIDE

REACTIONS (10)
  - Pain in extremity [Unknown]
  - Gait disturbance [Unknown]
  - Condition aggravated [Unknown]
  - Muscle spasms [Unknown]
  - Sensory disturbance [Unknown]
  - Sleep disorder [Unknown]
  - Blood pressure increased [Unknown]
  - Memory impairment [Unknown]
  - Feeling abnormal [Unknown]
  - Arthralgia [Unknown]
